FAERS Safety Report 7399617-4 (Version None)
Quarter: 2011Q2

REPORT INFORMATION
  Report Type: 
  Country: None (occurrence: None)
  Receive Date: 20110405
  Receipt Date: 20110405
  Transmission Date: 20111010
  Serious: Yes (Other)
  Sender: FDA-Public Use
  Company Number: None

PATIENT
  Age: 16 Year
  Sex: Female
  Weight: 56.6996 kg

DRUGS (2)
  1. JUNEL 1/20 [Suspect]
     Indication: ACNE
     Dosage: 1 PILL DAILY PO
     Route: 048
     Dates: start: 20110103, end: 20110323
  2. JUNEL 1/20 [Suspect]
     Indication: MENSTRUAL DISORDER
     Dosage: 1 PILL DAILY PO
     Route: 048
     Dates: start: 20110103, end: 20110323

REACTIONS (11)
  - HYPOAESTHESIA [None]
  - DEPRESSION [None]
  - NEGATIVISM [None]
  - HYPERPHAGIA [None]
  - CONFUSIONAL STATE [None]
  - MUSCLE SPASMS [None]
  - MOOD ALTERED [None]
  - ASTHENIA [None]
  - FEELING ABNORMAL [None]
  - DECREASED INTEREST [None]
  - STRESS [None]
